FAERS Safety Report 21734705 (Version 3)
Quarter: 2023Q1

REPORT INFORMATION
  Report Type: Report from Study
  Country: US (occurrence: US)
  Receive Date: 20221215
  Receipt Date: 20230328
  Transmission Date: 20230417
  Serious: Yes (Death, Other)
  Sender: FDA-Public Use
  Company Number: US-TAKEDA-2022TUS097053

PATIENT
  Age: 70 Year
  Sex: Female
  Weight: 103.4 kg

DRUGS (65)
  1. PARATHYROID HORMONE [Suspect]
     Active Substance: PARATHYROID HORMONE
     Indication: Hypoparathyroidism
     Dosage: 100 MICROGRAM, QD
     Route: 058
     Dates: start: 20171017, end: 20180205
  2. PARATHYROID HORMONE [Suspect]
     Active Substance: PARATHYROID HORMONE
     Indication: Hypoparathyroidism
     Dosage: 100 MICROGRAM, QD
     Route: 058
     Dates: start: 20171017, end: 20180205
  3. PARATHYROID HORMONE [Suspect]
     Active Substance: PARATHYROID HORMONE
     Indication: Hypoparathyroidism
     Dosage: 100 MICROGRAM, QD
     Route: 058
     Dates: start: 20171017, end: 20180205
  4. PARATHYROID HORMONE [Suspect]
     Active Substance: PARATHYROID HORMONE
     Dosage: 50 MICROGRAM, QD
     Route: 058
     Dates: start: 20160721, end: 20170308
  5. PARATHYROID HORMONE [Suspect]
     Active Substance: PARATHYROID HORMONE
     Dosage: 50 MICROGRAM, QD
     Route: 058
     Dates: start: 20160721, end: 20170308
  6. PARATHYROID HORMONE [Suspect]
     Active Substance: PARATHYROID HORMONE
     Dosage: 50 MICROGRAM, QD
     Route: 058
     Dates: start: 20160721, end: 20170308
  7. PARATHYROID HORMONE [Suspect]
     Active Substance: PARATHYROID HORMONE
     Dosage: 75 MICROGRAM, QD
     Route: 058
     Dates: start: 20170309, end: 20171016
  8. PARATHYROID HORMONE [Suspect]
     Active Substance: PARATHYROID HORMONE
     Dosage: 75 MICROGRAM, QD
     Route: 058
     Dates: start: 20170309, end: 20171016
  9. PARATHYROID HORMONE [Suspect]
     Active Substance: PARATHYROID HORMONE
     Dosage: 75 MICROGRAM, QD
     Route: 058
     Dates: start: 20170309, end: 20171016
  10. PARATHYROID HORMONE [Suspect]
     Active Substance: PARATHYROID HORMONE
     Dosage: 75 MICROGRAM, QD
     Route: 058
     Dates: start: 20180206, end: 20190913
  11. PARATHYROID HORMONE [Suspect]
     Active Substance: PARATHYROID HORMONE
     Dosage: 75 MICROGRAM, QD
     Route: 058
     Dates: start: 20180206, end: 20190913
  12. PARATHYROID HORMONE [Suspect]
     Active Substance: PARATHYROID HORMONE
     Dosage: 75 MICROGRAM, QD
     Route: 058
     Dates: start: 20180206, end: 20190913
  13. PARATHYROID HORMONE [Suspect]
     Active Substance: PARATHYROID HORMONE
     Dosage: 75 MICROGRAM, QD
     Route: 058
     Dates: start: 20191110, end: 20221128
  14. PARATHYROID HORMONE [Suspect]
     Active Substance: PARATHYROID HORMONE
     Dosage: 75 MICROGRAM, QD
     Route: 058
     Dates: start: 20191110, end: 20221128
  15. PARATHYROID HORMONE [Suspect]
     Active Substance: PARATHYROID HORMONE
     Dosage: 75 MICROGRAM, QD
     Route: 058
     Dates: start: 20191110, end: 20221128
  16. SIMETHICONE (DIMETHICONE) [Concomitant]
     Active Substance: DIMETHICONE
     Indication: Gastrooesophageal reflux disease
     Dosage: UNK
     Route: 065
     Dates: start: 20160406, end: 20160615
  17. DIPRIVAN [Concomitant]
     Active Substance: PROPOFOL
     Indication: Anaesthesia
     Dosage: UNK
     Route: 042
     Dates: start: 20160406, end: 20160406
  18. NEO-SYNEPHRINE [Concomitant]
     Active Substance: PHENYLEPHRINE HYDROCHLORIDE
     Indication: Prophylaxis
     Dosage: UNK
     Route: 042
     Dates: start: 20160615, end: 20160615
  19. ROBINUL [Concomitant]
     Active Substance: GLYCOPYRROLATE
     Indication: Prophylaxis
     Dosage: UNK
     Route: 042
     Dates: start: 20160615, end: 20160615
  20. XYLOCAINE [Concomitant]
     Active Substance: LIDOCAINE HYDROCHLORIDE
     Indication: Anaesthetic premedication
     Dosage: UNK
     Route: 042
     Dates: start: 20160615, end: 20160615
  21. CARAFATE [Concomitant]
     Active Substance: SUCRALFATE
     Indication: Antacid therapy
     Dosage: UNK
     Route: 065
     Dates: start: 20160615, end: 20161006
  22. EFFEXOR [Concomitant]
     Active Substance: VENLAFAXINE HYDROCHLORIDE
     Indication: Antidepressant therapy
     Dosage: UNK
     Route: 065
     Dates: start: 20140808, end: 20160111
  23. HYGROTON [Concomitant]
     Active Substance: CHLORTHALIDONE
     Indication: Hypertension
     Dosage: UNK
     Route: 065
     Dates: start: 20141106, end: 20160111
  24. ALLEGRA [Concomitant]
     Active Substance: FEXOFENADINE HYDROCHLORIDE
     Indication: Multiple allergies
     Dosage: UNK
     Route: 065
     Dates: start: 20150630, end: 20160111
  25. CARDURA [Concomitant]
     Active Substance: DOXAZOSIN MESYLATE
     Indication: Hypertension
     Dosage: UNK
     Route: 065
     Dates: start: 20150630, end: 20160111
  26. HYDRODIURIL [Concomitant]
     Active Substance: HYDROCHLOROTHIAZIDE
     Indication: Hypertension
     Dosage: UNK
     Route: 048
     Dates: start: 20150630
  27. METHOTREXATE SODIUM [Concomitant]
     Active Substance: METHOTREXATE SODIUM
     Indication: Arthritis
     Dosage: UNK
     Route: 065
     Dates: end: 20160111
  28. REMERON [Concomitant]
     Active Substance: MIRTAZAPINE
     Indication: Antidepressant therapy
     Dosage: UNK
     Dates: start: 20160111, end: 20160111
  29. ZANTAC [Concomitant]
     Active Substance: RANITIDINE HYDROCHLORIDE
     Indication: Antacid therapy
     Dosage: UNK
     Dates: start: 20160308, end: 20161006
  30. DEXILANT [Concomitant]
     Active Substance: DEXLANSOPRAZOLE
     Indication: Dyspepsia
     Dosage: UNK
     Dates: start: 20160308, end: 20161006
  31. DEXILANT [Concomitant]
     Active Substance: DEXLANSOPRAZOLE
     Indication: Gastrooesophageal reflux disease
  32. NASONEX [Concomitant]
     Active Substance: MOMETASONE FUROATE
     Indication: Multiple allergies
     Dosage: UNK
     Dates: start: 20160617
  33. VERAMYST [Concomitant]
     Active Substance: FLUTICASONE FUROATE
     Indication: Multiple allergies
     Dosage: UNK
     Dates: start: 20131015, end: 20160706
  34. SYNTHROID [Concomitant]
     Active Substance: LEVOTHYROXINE SODIUM
     Indication: Hypothyroidism
     Dosage: UNK
     Route: 048
     Dates: start: 20141202
  35. ABILIFY [Concomitant]
     Active Substance: ARIPIPRAZOLE
     Indication: Depression
     Dosage: UNK
     Route: 048
     Dates: start: 20100520
  36. AGGRENOX [Concomitant]
     Active Substance: ASPIRIN\DIPYRIDAMOLE
     Indication: Cerebrovascular accident
     Dosage: UNK
     Route: 048
     Dates: start: 20100520
  37. ALTACE [Concomitant]
     Active Substance: RAMIPRIL
     Indication: Hypertension
     Dosage: UNK
     Dates: start: 20100520, end: 20160111
  38. SODIUM HYALURONATE [Concomitant]
     Active Substance: HYALURONATE SODIUM
     Indication: Osteoarthritis
     Dosage: UNK
     Dates: start: 20160815
  39. LIPITOR [Concomitant]
     Active Substance: ATORVASTATIN CALCIUM
     Indication: Hypertension
     Dosage: UNK
     Route: 048
     Dates: start: 20160805, end: 20170605
  40. BARIUM SULFATE [Concomitant]
     Active Substance: BARIUM SULFATE
     Indication: Gastrooesophageal reflux disease
     Dosage: UNK
     Dates: start: 20160628, end: 20160628
  41. LIDOCAINE [Concomitant]
     Active Substance: LIDOCAINE
     Indication: Gastrooesophageal reflux disease
     Dosage: UNK
     Dates: start: 20160815, end: 20160815
  42. CYANOCOBALAMIN [Concomitant]
     Active Substance: CYANOCOBALAMIN
     Indication: Anaemia
     Dosage: UNK
     Dates: start: 20160927, end: 20160927
  43. AFLURIA NOS [Concomitant]
     Active Substance: INFLUENZA VIRUS VACCINE TRIVALENT TYPE A+B AFLURIA
     Dosage: UNK
     Dates: start: 20160927, end: 20160927
  44. TICAGRELOR [Concomitant]
     Active Substance: TICAGRELOR
     Indication: Cerebrovascular accident
     Dosage: UNK
     Route: 048
     Dates: start: 20180330
  45. IPRATROPIUM [Concomitant]
     Active Substance: IPRATROPIUM
     Indication: Cough
     Dosage: UNK
     Dates: start: 20180309
  46. ASPIRIN [Concomitant]
     Active Substance: ASPIRIN
     Indication: Back pain
     Dosage: UNK
     Route: 048
     Dates: start: 20180330
  47. DICLOFENAC [Concomitant]
     Active Substance: DICLOFENAC
     Indication: Back pain
     Dosage: UNK
     Route: 061
     Dates: start: 20170520
  48. EPOETIN ALFA [Concomitant]
     Active Substance: ERYTHROPOIETIN
     Indication: Anaemia
     Dosage: UNK
     Route: 058
     Dates: start: 20171117, end: 20171208
  49. IRON DEXTRAN [Concomitant]
     Active Substance: IRON DEXTRAN
     Indication: Anaemia
     Dosage: UNK
     Route: 042
     Dates: start: 20171204, end: 20171204
  50. BETAMETHASONE [Concomitant]
     Active Substance: BETAMETHASONE
     Indication: Arthralgia
     Dosage: UNK
     Dates: start: 20171031, end: 20171031
  51. CEPHALEXIN [Concomitant]
     Active Substance: CEPHALEXIN
     Indication: Bronchitis
     Dosage: UNK
     Route: 048
     Dates: start: 20170930, end: 20170930
  52. CEPHALEXIN [Concomitant]
     Active Substance: CEPHALEXIN
     Indication: Cystitis
  53. COSYNTROPIN [Concomitant]
     Active Substance: COSYNTROPIN
     Indication: Blood corticotrophin
     Dosage: UNK
     Route: 042
     Dates: start: 20171011, end: 20171011
  54. BENZONATATE [Concomitant]
     Active Substance: BENZONATATE
     Indication: Cough
     Dosage: UNK
     Route: 048
     Dates: start: 20171214, end: 20180118
  55. PREDNISONE [Concomitant]
     Active Substance: PREDNISONE
     Indication: Bronchitis
     Dosage: UNK
     Route: 048
     Dates: start: 20171218, end: 20171223
  56. LEVOFLOXACIN [Concomitant]
     Active Substance: LEVOFLOXACIN
     Indication: Bronchitis
     Dosage: UNK
     Route: 048
     Dates: start: 20171218, end: 20171218
  57. Guaifenesin + codeine [Concomitant]
     Indication: Cough
     Dosage: UNK
     Route: 048
     Dates: start: 20171214, end: 20180118
  58. AMOXICILLIN\CLAVULANIC ACID [Concomitant]
     Active Substance: AMOXICILLIN\CLAVULANIC ACID
     Indication: Bronchitis
     Dosage: UNK
     Route: 048
     Dates: start: 20180102, end: 20180109
  59. AZITHROMYCIN [Concomitant]
     Active Substance: AZITHROMYCIN
     Indication: Laryngitis
     Dosage: UNK
     Route: 048
     Dates: start: 20180530, end: 20180618
  60. DITROPAN [Concomitant]
     Active Substance: OXYBUTYNIN CHLORIDE
     Indication: Incontinence
     Dosage: UNK
     Route: 048
     Dates: start: 20191224
  61. CEFPODOXIME [Concomitant]
     Active Substance: CEFPODOXIME
     Indication: Urinary tract infection
     Dosage: UNK
     Route: 048
     Dates: start: 20190904, end: 20190913
  62. MAGNESIUM [Concomitant]
     Active Substance: MAGNESIUM
     Dosage: 200 MILLIGRAM, BID
     Dates: start: 20170317
  63. CALCITRIOL [Concomitant]
     Active Substance: CALCITRIOL
     Dosage: 0.25 MICROGRAM, BID
     Dates: start: 20170929
  64. VITAMIN D [Concomitant]
     Active Substance: VITAMIN D NOS
     Dosage: 10000 INTERNATIONAL UNIT, QD
     Dates: start: 20170615
  65. CALCIUM CARBONATE [Concomitant]
     Active Substance: CALCIUM CARBONATE
     Dosage: 1200 MILLIGRAM, BID
     Dates: start: 20181019

REACTIONS (1)
  - Death [Fatal]

NARRATIVE: CASE EVENT DATE: 20221128
